FAERS Safety Report 12448066 (Version 1)
Quarter: 2016Q2

REPORT INFORMATION
  Report Type: Spontaneous
  Country: US (occurrence: US)
  Receive Date: 20160608
  Receipt Date: 20160608
  Transmission Date: 20160815
  Serious: Yes (Other)
  Sender: FDA-Public Use
  Company Number: US-MDT-ADR-2016-00281

PATIENT
  Age: 43 Year
  Sex: Female

DRUGS (2)
  1. COMPOUNDED BACLOFEN [Suspect]
     Active Substance: BACLOFEN
     Dosage: 1.8/DAY
     Route: 037
     Dates: end: 20160210
  2. COMPOUNDED MORPHINE [Suspect]
     Active Substance: MORPHINE
     Dosage: 0.006/DAY
     Route: 037
     Dates: end: 20160210

REACTIONS (2)
  - Muscle spasms [Unknown]
  - Anxiety [Unknown]

NARRATIVE: CASE EVENT DATE: 20160127
